FAERS Safety Report 6979463-3 (Version None)
Quarter: 2010Q3

REPORT INFORMATION
  Report Type: 
  Country: None (occurrence: None)
  Receive Date: 20100910
  Receipt Date: 20100910
  Transmission Date: 20110219
  Serious: Yes (Hospitalization)
  Sender: FDA-Public Use
  Company Number: None

PATIENT
  Age: 76 Year
  Sex: Female

DRUGS (6)
  1. ARICEPT [Suspect]
     Indication: VASCULAR DEMENTIA
     Dosage: 10MG QD PO
     Route: 048
     Dates: start: 20100601
  2. FUROSEMIDE [Suspect]
     Indication: HYPERTENSION
     Dosage: 2OMG QAM PO
     Route: 048
     Dates: start: 20090801
  3. RISPERIDONE [Suspect]
     Indication: DEMENTIA
     Dosage: 1MG QHS PO
     Route: 048
     Dates: start: 20080828
  4. PILOCARPINE [Suspect]
     Indication: GLAUCOMA
     Dosage: 2% TID OPHTH
     Route: 047
     Dates: start: 20080707
  5. CARBIDOPA + LEVODOPA [Suspect]
     Indication: BLOOD SODIUM
     Dosage: 25/100 ONE TID PO
     Route: 048
     Dates: start: 20100604
  6. LISINOPRIL [Suspect]
     Indication: HYPERTENSION
     Dosage: 10MG QD PO
     Route: 048
     Dates: start: 20100707

REACTIONS (2)
  - HYPOTENSION [None]
  - SYNCOPE [None]
